FAERS Safety Report 4476438-3 (Version None)
Quarter: 2004Q4

REPORT INFORMATION
  Report Type: 
  Country: None (occurrence: None)
  Receive Date: 20041012
  Receipt Date: 20041006
  Transmission Date: 20050328
  Serious: Yes (Death)
  Sender: FDA-Public Use
  Company Number: USA-2004-0017131

PATIENT
  Age: 29 Year
  Sex: Male
  Weight: 89.8 kg

DRUGS (4)
  1. OXYCONTIN [Suspect]
     Indication: PAIN
     Dosage: 40 MG, SEE TEXT
  2. LORCET-HD [Concomitant]
  3. FIORICET [Concomitant]
  4. XANAX [Concomitant]

REACTIONS (9)
  - ARTHRALGIA [None]
  - COMPLETED SUICIDE [None]
  - GUN SHOT WOUND [None]
  - HEADACHE [None]
  - HYPOAESTHESIA [None]
  - MUSCLE SPASMS [None]
  - NECK PAIN [None]
  - PAIN IN EXTREMITY [None]
  - SOMNOLENCE [None]
